FAERS Safety Report 8082919-6 (Version None)
Quarter: 2012Q1

REPORT INFORMATION
  Report Type: 
  Country: None (occurrence: None)
  Receive Date: 20120127
  Receipt Date: 20110203
  Transmission Date: 20120608
  Serious: No
  Sender: FDA-Public Use
  Company Number: US-ABBOTT-11P-163-0702428-00

PATIENT
  Sex: Female
  Weight: 63.56 kg

DRUGS (10)
  1. ASPIRIN [Concomitant]
     Indication: PRODUCT USED FOR UNKNOWN INDICATION
  2. BIOTIN [Concomitant]
     Indication: ALOPECIA
  3. METHOTREXATE [Concomitant]
     Indication: PRODUCT USED FOR UNKNOWN INDICATION
  4. METOPROLOL TARTRATE [Concomitant]
     Indication: CARDIAC DISORDER
  5. HUMIRA [Suspect]
     Indication: RHEUMATOID ARTHRITIS
     Dates: start: 20110122
  6. PREDNISONE TAB [Concomitant]
     Indication: RHEUMATOID ARTHRITIS
  7. HYDROCHLOROTHIAZIDE [Concomitant]
     Indication: PRODUCT USED FOR UNKNOWN INDICATION
  8. HYDROCHLOROQUIN [Concomitant]
     Indication: RHEUMATOID ARTHRITIS
  9. CALCIUM +D [Concomitant]
     Indication: MINERAL SUPPLEMENTATION
  10. FLECAINIDE ACETATE [Concomitant]
     Indication: CARDIAC DISORDER

REACTIONS (4)
  - FEELING ABNORMAL [None]
  - FLUSHING [None]
  - INJECTION SITE PAIN [None]
  - DEVICE MALFUNCTION [None]
